FAERS Safety Report 5634968-2 (Version None)
Quarter: 2008Q1

REPORT INFORMATION
  Report Type: 
  Country: None (occurrence: None)
  Receive Date: 20080222
  Receipt Date: 20080213
  Transmission Date: 20080703
  Serious: Yes (Other)
  Sender: FDA-Public Use
  Company Number: PHHO2008DE02264

PATIENT
  Sex: Female
  Weight: 64 kg

DRUGS (2)
  1. ARIMIDEX [Concomitant]
     Indication: BREAST CANCER
  2. ZOLEDRONIC ACID [Suspect]
     Indication: BREAST CANCER
     Dosage: 4MG
     Route: 042
     Dates: start: 20071206, end: 20071206

REACTIONS (1)
  - SKIN REACTION [None]
